FAERS Safety Report 4788092-1 (Version None)
Quarter: 2005Q4

REPORT INFORMATION
  Report Type: 
  Country: None (occurrence: None)
  Receive Date: 20051003
  Receipt Date: 20050922
  Transmission Date: 20060501
  Serious: Yes (Hospitalization)
  Sender: FDA-Public Use
  Company Number: 2005-09-1404

PATIENT
  Age: 30 Year
  Sex: Female

DRUGS (4)
  1. ENDOXAN INJECTABLE [Suspect]
     Indication: SYSTEMIC LUPUS ERYTHEMATOSUS
     Dosage: 750 MG/M2/D INTRAVENOUS
     Route: 042
     Dates: start: 19970430, end: 19970929
  2. CELESTONE [Suspect]
     Indication: SYSTEMIC LUPUS ERYTHEMATOSUS
     Dosage: 2.6 MG /DAY ORAL
     Route: 048
     Dates: start: 19930101
  3. SELBEX [Concomitant]
  4. ALOSENN [Concomitant]

REACTIONS (2)
  - CERVIX CARCINOMA [None]
  - MENSTRUAL DISORDER [None]
